FAERS Safety Report 9643283 (Version 3)
Quarter: 2013Q4

REPORT INFORMATION
  Report Type: Spontaneous
  Country: FR (occurrence: FR)
  Receive Date: 20131024
  Receipt Date: 20131030
  Transmission Date: 20140711
  Serious: Yes (Hospitalization)
  Sender: FDA-Public Use
  Company Number: FR-PFIZER INC-2013301347

PATIENT
  Age: 62 Year
  Sex: Male

DRUGS (9)
  1. FLUOROURACILE PFIZER [Suspect]
     Dosage: 4200 MG, SINGLE
     Route: 042
     Dates: start: 20130809, end: 20130811
  2. OXALIPLATIN ACCORD [Suspect]
     Dosage: 170 MG, SINGLE
     Route: 042
     Dates: start: 20130809
  3. AVASTIN [Suspect]
     Dosage: 395 MG, SINGLE
     Dates: start: 20130809
  4. CALCIUM LEVOFOLINATE [Suspect]
     Dosage: 400 MG, SINGLE
     Route: 042
     Dates: start: 20130809
  5. ZOPHREN [Concomitant]
     Dosage: 8 MG, SINGLE
     Route: 042
     Dates: start: 20130809
  6. METHYLPREDNISOLONE MYLAN [Concomitant]
     Dosage: 120 MG, SINGLE
     Route: 042
     Dates: start: 20130809
  7. GLUCOPHAGE [Concomitant]
     Route: 042
  8. ACTRAPID [Concomitant]
     Route: 042
  9. INNOHEP [Concomitant]
     Route: 042

REACTIONS (1)
  - Cerebellar syndrome [Recovered/Resolved]
